FAERS Safety Report 8319162-9 (Version None)
Quarter: 2012Q2

REPORT INFORMATION
  Report Type: 
  Country: None (occurrence: None)
  Receive Date: 20120427
  Receipt Date: 20120412
  Transmission Date: 20120825
  Serious: No
  Sender: FDA-Public Use
  Company Number: US-JNJFOC-20120406321

PATIENT
  Sex: Male
  Weight: 79.38 kg

DRUGS (5)
  1. INVEGA SUSTENNA [Suspect]
     Indication: PRODUCT USED FOR UNKNOWN INDICATION
     Route: 030
     Dates: start: 20110101
  2. AN UNKNOWN MEDICATION [Concomitant]
     Indication: FOOD ALLERGY
     Route: 048
  3. AN UNKNOWN MEDICATION [Concomitant]
     Route: 048
  4. OMEPRAZOLE [Concomitant]
     Indication: GASTRIC DISORDER
     Route: 048
  5. AN UNKNOWN MEDICATION [Concomitant]
     Route: 048

REACTIONS (2)
  - BODY FAT DISORDER [None]
  - WEIGHT INCREASED [None]
